FAERS Safety Report 5082099-5 (Version None)
Quarter: 2006Q3

REPORT INFORMATION
  Report Type: 
  Country: None (occurrence: None)
  Receive Date: 20060811
  Receipt Date: 20060731
  Transmission Date: 20061208
  Serious: Yes (Hospitalization)
  Sender: FDA-Public Use
  Company Number: 2006094922

PATIENT
  Age: 70 Year
  Sex: Male
  Weight: 80 kg

DRUGS (5)
  1. CABERGOLINE [Suspect]
     Indication: PARKINSON'S DISEASE
     Dosage: ORAL
     Route: 048
     Dates: start: 20060717, end: 20060728
  2. L-DOPA (LEVODOPA) [Concomitant]
  3. ACETYLSALICYLIC ACID SRT [Concomitant]
  4. DIPYRONE TAB [Concomitant]
  5. TRAMADOL HCL [Concomitant]

REACTIONS (7)
  - ACCIDENTAL OVERDOSE [None]
  - ASCITES [None]
  - BLOOD CREATINE PHOSPHOKINASE INCREASED [None]
  - C-REACTIVE PROTEIN INCREASED [None]
  - DYSKINESIA [None]
  - PYREXIA [None]
  - SOMNOLENCE [None]
